FAERS Safety Report 4582361-6 (Version None)
Quarter: 2005Q1

REPORT INFORMATION
  Report Type: 
  Country: None (occurrence: None)
  Receive Date: 20050119
  Receipt Date: 20040113
  Transmission Date: 20050727
  Serious: Yes (Other)
  Sender: FDA-Public Use
  Company Number: US-JNJFOC-20031006099

PATIENT
  Age: 37 Year
  Sex: Female
  Weight: 94.3482 kg

DRUGS (5)
  1. DOXIL [Suspect]
     Indication: OVARIAN CANCER
     Dosage: 50 MG,  25 MG INTRAVENOUS
     Route: 042
     Dates: start: 20031023
  2. BENADRYL (DIPHENYDRAMINE HYDROCHLORIDE) [Concomitant]
  3. DECADRON [Concomitant]
  4. KYTRIL [Concomitant]
  5. ATIVAN [Concomitant]

REACTIONS (5)
  - CHEST PAIN [None]
  - DYSPNOEA [None]
  - FLUSHING [None]
  - INFUSION RELATED REACTION [None]
  - PALPITATIONS [None]
